FAERS Safety Report 8876820 (Version 1)
Quarter: 2012Q4

REPORT INFORMATION
  Report Type: 
  Country: US (occurrence: US)
  Receive Date: 20121023
  Receipt Date: 20121023
  Transmission Date: 20130627
  Serious: No
  Sender: FDA-Public Use
  Company Number: US-AMGEN-USASP2012052911

PATIENT
  Sex: Male
  Weight: 107.3 kg

DRUGS (7)
  1. ENBREL [Suspect]
     Indication: PRODUCT USED FOR UNKNOWN INDICATION
     Dosage: 50 mg/ml, 2 times/wk
     Route: 058
  2. IBUPROFEN [Concomitant]
  3. SINGULAIR [Concomitant]
     Dosage: 10 mg, UNK
  4. METHOTREXATE [Concomitant]
     Dosage: 2.5 mg, UNK
  5. LAMOTRIGINE [Concomitant]
     Dosage: 100 mg, UNK
  6. FENOFIBRATE [Concomitant]
     Dosage: 134 mg, UNK
  7. HYDROCHLOROTH [Concomitant]
     Dosage: 12.5 mg, UNK

REACTIONS (1)
  - Pain [Unknown]
